FAERS Safety Report 21358714 (Version 2)
Quarter: 2022Q4

REPORT INFORMATION
  Report Type: Report from Study
  Country: US (occurrence: US)
  Receive Date: 20220921
  Receipt Date: 20221219
  Transmission Date: 20230113
  Serious: Yes (Other)
  Sender: FDA-Public Use
  Company Number: US-ABBVIE-22K-163-4417798-00

PATIENT
  Sex: Male

DRUGS (1)
  1. IMBRUVICA [Suspect]
     Active Substance: IBRUTINIB
     Indication: Chronic lymphocytic leukaemia
     Route: 048
     Dates: start: 201804

REACTIONS (8)
  - Skin cancer [Unknown]
  - Blood blister [Unknown]
  - Atrial fibrillation [Unknown]
  - Tooth loss [Unknown]
  - Rash [Unknown]
  - Post procedural complication [Unknown]
  - Dry mouth [Unknown]
  - Feeling abnormal [Unknown]
